FAERS Safety Report 8648052 (Version 6)
Quarter: 2013Q1

REPORT INFORMATION
  Report Type: Report from Study
  Country: CA (occurrence: CA)
  Receive Date: 20120703
  Receipt Date: 20130110
  Transmission Date: 20140127
  Serious: Yes (Hospitalization, Other)
  Sender: FDA-Public Use
  Company Number: CA-ROCHE-1082294

PATIENT
  Age: 83 None
  Sex: Female
  Weight: 34.05 kg

DRUGS (18)
  1. TOCILIZUMAB [Suspect]
     Indication: RHEUMATOID ARTHRITIS
     Route: 042
     Dates: start: 20120420, end: 20120911
  2. FOLIC ACID [Concomitant]
  3. VITAMIN D [Concomitant]
  4. CALCIUM [Concomitant]
     Route: 065
  5. ASA [Concomitant]
  6. EZETROL [Concomitant]
  7. FOSAMAX [Concomitant]
  8. CLARITHROMYCIN [Concomitant]
  9. ETHAMBUTOL [Concomitant]
     Dosage: BRAND NAME: AMBUTOL
     Route: 065
  10. LEVOFLOXACIN [Concomitant]
  11. PREDNISONE [Concomitant]
  12. METHOTREXATE [Concomitant]
  13. ADVIL [Concomitant]
     Route: 065
     Dates: start: 20120608
  14. CEPHALEXIN [Concomitant]
  15. DIFLUCAN [Concomitant]
  16. CIPROFLOXACIN [Concomitant]
     Route: 065
     Dates: start: 20120713, end: 20120719
  17. CIMZIA [Concomitant]
  18. CLARITHROMYCIN [Concomitant]

REACTIONS (13)
  - Respiratory distress [Not Recovered/Not Resolved]
  - Heart rate increased [Not Recovered/Not Resolved]
  - Respiratory rate increased [Not Recovered/Not Resolved]
  - Rales [Not Recovered/Not Resolved]
  - Pallor [Not Recovered/Not Resolved]
  - Burkholderia cepacia complex infection [Not Recovered/Not Resolved]
  - Dysphagia [Not Recovered/Not Resolved]
  - Cytomegalovirus oesophagitis [Not Recovered/Not Resolved]
  - Oesophageal stenosis [Not Recovered/Not Resolved]
  - Atypical mycobacterial infection [Unknown]
  - Oral fungal infection [Not Recovered/Not Resolved]
  - Laryngitis [Not Recovered/Not Resolved]
  - Cough [Not Recovered/Not Resolved]
